FAERS Safety Report 11491780 (Version 3)
Quarter: 2015Q4

REPORT INFORMATION
  Report Type: Spontaneous
  Country: US (occurrence: US)
  Receive Date: 20150910
  Receipt Date: 20151029
  Transmission Date: 20160304
  Serious: No
  Sender: FDA-Public Use
  Company Number: US-GLAXOSMITHKLINE-US2015129616

PATIENT
  Sex: Female

DRUGS (4)
  1. VALIUM [Concomitant]
     Active Substance: DIAZEPAM
  2. DEXTROAMFETAMINE [Concomitant]
  3. CLOPIDOGREL [Concomitant]
     Active Substance: CLOPIDOGREL BISULFATE
  4. LAMOTRIGINE. [Suspect]
     Active Substance: LAMOTRIGINE
     Indication: BIPOLAR DISORDER
     Dosage: UNK
     Route: 048
     Dates: start: 2010

REACTIONS (8)
  - Exhibitionism [Recovered/Resolved]
  - Excessive sexual fantasies [Recovered/Resolved]
  - Breast induration [Recovered/Resolved]
  - Breast discomfort [Recovered/Resolved]
  - Libido increased [Recovered/Resolved]
  - Product substitution issue [Recovered/Resolved]
  - Victim of sexual abuse [Unknown]
  - Excessive masturbation [Recovered/Resolved]

NARRATIVE: CASE EVENT DATE: 2010
